FAERS Safety Report 18569321 (Version 1)
Quarter: 2020Q4

REPORT INFORMATION
  Report Type: Spontaneous
  Country: US (occurrence: US)
  Receive Date: 20201202
  Receipt Date: 20201202
  Transmission Date: 20210114
  Serious: No
  Sender: FDA-Public Use
  Company Number: US-DECIPHERA PHARMACEUTICALS LLC-2020-US-000419

PATIENT
  Age: 59 Year
  Sex: Male

DRUGS (4)
  1. QINLOCK [Suspect]
     Active Substance: RIPRETINIB
     Dosage: UNK
     Route: 065
     Dates: start: 20200928
  2. QINLOCK [Suspect]
     Active Substance: RIPRETINIB
     Dosage: 150 MILLIGRAM, 3 TABLETS, BID
     Dates: start: 20201030, end: 20201030
  3. QINLOCK [Suspect]
     Active Substance: RIPRETINIB
     Indication: PRODUCT USED FOR UNKNOWN INDICATION
     Dosage: 150 MILLIGRAM, QD
     Route: 048
  4. QINLOCK [Suspect]
     Active Substance: RIPRETINIB
     Dosage: UNK
     Dates: start: 20200930

REACTIONS (7)
  - Weight decreased [Unknown]
  - Myalgia [Unknown]
  - Overdose [Recovered/Resolved]
  - Off label use [Recovered/Resolved]
  - Muscle atrophy [Unknown]
  - Fatigue [Unknown]
  - Alopecia [Unknown]

NARRATIVE: CASE EVENT DATE: 20200928
